FAERS Safety Report 7700543-9 (Version None)
Quarter: 2011Q3

REPORT INFORMATION
  Report Type: 
  Country: None (occurrence: None)
  Receive Date: 20110822
  Receipt Date: 20110809
  Transmission Date: 20111222
  Serious: Yes (Hospitalization, Other)
  Sender: FDA-Public Use
  Company Number: US-CELGENEUS-163-21880-09010818

PATIENT
  Age: 74 Year
  Sex: Male
  Weight: 91.1 kg

DRUGS (2)
  1. TEMSIROLIMUS [Suspect]
     Dosage: 20 MILLIGRAM
     Route: 041
     Dates: start: 20090108, end: 20090108
  2. LENALIDOMIDE [Suspect]
     Dosage: 25 MILLIGRAM
     Route: 048
     Dates: start: 20090108, end: 20090112

REACTIONS (4)
  - HYPOKALAEMIA [None]
  - HYPOPHOSPHATAEMIA [None]
  - PLATELET COUNT DECREASED [None]
  - HAEMATURIA [None]
